FAERS Safety Report 23545680 (Version 1)
Quarter: 2024Q1

REPORT INFORMATION
  Report Type: Spontaneous
  Country: US (occurrence: None)
  Receive Date: 20240218
  Receipt Date: 20240218
  Transmission Date: 20240410
  Serious: Yes (Hospitalization, Disabling)
  Sender: FDA-Public Use
  Company Number: None

PATIENT
  Age: 77 Year
  Sex: Male
  Weight: 98.5 kg

DRUGS (1)
  1. LEVOFLOXACIN [Suspect]
     Active Substance: LEVOFLOXACIN
     Indication: Urinary tract infection
     Dosage: FREQUENCY : DAILY;?
     Route: 048

REACTIONS (8)
  - Tendon rupture [None]
  - Labelled drug-disease interaction issue [None]
  - Urinary tract infection [None]
  - Arthralgia [None]
  - Joint swelling [None]
  - Weight bearing difficulty [None]
  - Musculoskeletal disorder [None]
  - Circumstance or information capable of leading to medication error [None]

NARRATIVE: CASE EVENT DATE: 20240116
